FAERS Safety Report 19123546 (Version 3)
Quarter: 2022Q1

REPORT INFORMATION
  Report Type: Report from Study
  Country: KR (occurrence: None)
  Receive Date: 20210412
  Receipt Date: 20220315
  Transmission Date: 20220423
  Serious: Yes (Hospitalization)
  Sender: FDA-Public Use
  Company Number: KR-EISAI MEDICAL RESEARCH-EC-2021-090974

PATIENT
  Age: 74 Year
  Sex: Male

DRUGS (5)
  1. LENVIMA [Suspect]
     Active Substance: LENVATINIB
     Indication: Hepatocellular carcinoma
     Route: 048
     Dates: start: 20210404, end: 20210407
  2. URSODIOL [Concomitant]
     Active Substance: URSODIOL
     Indication: Prophylaxis
     Route: 048
     Dates: start: 2011
  3. BARACLUDE [Concomitant]
     Active Substance: ENTECAVIR
     Indication: Hepatitis B virus test positive
     Route: 048
     Dates: start: 201010
  4. ARONAMIN C PLUS [Concomitant]
     Indication: Prophylaxis
     Route: 048
     Dates: start: 20121212
  5. NEXIUM [Concomitant]
     Active Substance: ESOMEPRAZOLE MAGNESIUM
     Indication: Prophylaxis
     Route: 048
     Dates: start: 201806

REACTIONS (2)
  - Hypertension [Recovered/Resolved]
  - Hepatic encephalopathy [Recovered/Resolved]

NARRATIVE: CASE EVENT DATE: 20210407
